FAERS Safety Report 13351285 (Version 2)
Quarter: 2017Q2

REPORT INFORMATION
  Report Type: Spontaneous
  Country: US (occurrence: US)
  Receive Date: 20170320
  Receipt Date: 20170417
  Transmission Date: 20170830
  Serious: No
  Sender: FDA-Public Use
  Company Number: US-JNJFOC-20170306010

PATIENT
  Age: 77 Year
  Sex: Male
  Weight: 71.22 kg

DRUGS (1)
  1. ELMIRON [Suspect]
     Active Substance: PENTOSAN POLYSULFATE SODIUM
     Indication: CYSTITIS INTERSTITIAL
     Route: 048
     Dates: start: 20170124, end: 20170308

REACTIONS (2)
  - Drug ineffective [Unknown]
  - Penile discharge [Recovering/Resolving]

NARRATIVE: CASE EVENT DATE: 20170124
